FAERS Safety Report 17604580 (Version 3)
Quarter: 2020Q2

REPORT INFORMATION
  Report Type: Spontaneous
  Country: US (occurrence: US)
  Receive Date: 20200331
  Receipt Date: 20200629
  Transmission Date: 20200713
  Serious: Yes (Other)
  Sender: FDA-Public Use
  Company Number: US-PFIZER INC-2017438951

PATIENT
  Age: 77 Year
  Sex: Female
  Weight: 95.25 kg

DRUGS (1)
  1. CALAN SR [Suspect]
     Active Substance: VERAPAMIL HYDROCHLORIDE
     Indication: BLOOD PRESSURE FLUCTUATION
     Dosage: 120 MG TO 240 MG (ONE-HALF TO FULL TABLET), AS NEEDED
     Route: 048
     Dates: start: 2016

REACTIONS (6)
  - Neoplasm malignant [Unknown]
  - Weight increased [Unknown]
  - Loss of consciousness [Unknown]
  - Wrong technique in product usage process [Unknown]
  - Back disorder [Unknown]
  - Malaise [Unknown]

NARRATIVE: CASE EVENT DATE: 2016
